FAERS Safety Report 4545202-9 (Version None)
Quarter: 2005Q1

REPORT INFORMATION
  Report Type: 
  Country: None (occurrence: None)
  Receive Date: 20050103
  Receipt Date: 20041208
  Transmission Date: 20050727
  Serious: Yes (Other)
  Sender: FDA-Public Use
  Company Number: JP_041004961

PATIENT
  Age: 11 Year
  Sex: Male
  Weight: 23 kg

DRUGS (3)
  1. VANCOMYCIN [Suspect]
     Indication: ANTIBACTERIAL PROPHYLAXIS
     Dosage: 450 MG OTHER
     Route: 050
  2. VANCOMYCIN [Suspect]
     Indication: SURGERY
     Dosage: 450 MG OTHER
     Route: 050
  3. SEVOFLURANE [Concomitant]

REACTIONS (7)
  - BLOOD PRESSURE SYSTOLIC DECREASED [None]
  - CENTRAL VENOUS PRESSURE DECREASED [None]
  - HOT FLUSH [None]
  - MEDICATION ERROR [None]
  - NODAL RHYTHM [None]
  - OEDEMA PERIPHERAL [None]
  - RED MAN SYNDROME [None]
